FAERS Safety Report 18094308 (Version 1)
Quarter: 2020Q3

REPORT INFORMATION
  Report Type: Spontaneous
  Country: CA (occurrence: CA)
  Receive Date: 20200730
  Receipt Date: 20200730
  Transmission Date: 20201103
  Serious: Yes (Other)
  Sender: FDA-Public Use
  Company Number: CA-PFIZER INC-2020287509

PATIENT
  Age: 47 Year
  Sex: Male

DRUGS (25)
  1. HYDROCORTISONE. [Suspect]
     Active Substance: HYDROCORTISONE
     Route: 065
  2. APIXABAN [Concomitant]
     Active Substance: APIXABAN
     Dosage: 5 MG, 2 EVERY 1 DAYS
     Route: 065
  3. MYCOPHENOLATE MOFETIL. [Concomitant]
     Active Substance: MYCOPHENOLATE MOFETIL
     Dosage: 1000 MG, 2 EVERY 1 DAYS
     Route: 065
  4. METRONIDAZOLE. [Concomitant]
     Active Substance: METRONIDAZOLE
     Dosage: 500 MG, 2 EVERY 1 DAYS
     Route: 065
  5. PENTASA [Concomitant]
     Active Substance: MESALAMINE
     Route: 065
  6. BUDESONIDE. [Suspect]
     Active Substance: BUDESONIDE
     Dosage: 6 MG, 1 EVERY 1 DAYS
     Route: 065
  7. FLAGYL [Concomitant]
     Active Substance: METRONIDAZOLE\METRONIDAZOLE HYDROCHLORIDE
     Dosage: 500 MG, 3 EVERY 1 DAYS
     Route: 065
  8. METRONIDAZOLE. [Concomitant]
     Active Substance: METRONIDAZOLE
     Dosage: 500 MG, 1 EVERY 1 DAYS
     Route: 065
  9. PANTOPRAZOLE [Concomitant]
     Active Substance: PANTOPRAZOLE
     Dosage: 40 MG
     Route: 065
  10. BUDESONIDE. [Suspect]
     Active Substance: BUDESONIDE
     Dosage: 9 MG, 1 EVERY 1 DAYS
     Route: 065
  11. PAROXETINE. [Concomitant]
     Active Substance: PAROXETINE
     Dosage: 20 MG
     Route: 065
  12. URSODIOL. [Concomitant]
     Active Substance: URSODIOL
     Dosage: 500 MG, 2 EVERY 1 DAYS
     Route: 065
  13. CIPRO [Concomitant]
     Active Substance: CIPROFLOXACIN HYDROCHLORIDE
     Route: 065
  14. CORTIFOAM [Concomitant]
     Active Substance: HYDROCORTISONE ACETATE
     Route: 065
  15. VITAMIN D [ERGOCALCIFEROL] [Concomitant]
     Active Substance: ERGOCALCIFEROL
     Dosage: UNK UNK, 1 EVERY 1 DAYS
     Route: 065
  16. CALCIUM [Concomitant]
     Active Substance: CALCIUM
     Dosage: UNK, 1 EVERY 1 DAYS
     Route: 065
  17. MEZAVANT [Concomitant]
     Active Substance: MESALAMINE
     Dosage: 4 G, 1 EVERY 1 DAYS
     Route: 065
  18. MYCOPHENOLATE MOFETIL. [Concomitant]
     Active Substance: MYCOPHENOLATE MOFETIL
     Indication: LIVER TRANSPLANT
     Route: 065
  19. MESALAZINE [Suspect]
     Active Substance: MESALAMINE
     Route: 065
  20. MESALAZINE [Suspect]
     Active Substance: MESALAMINE
     Route: 065
  21. 5?ASA [Concomitant]
     Active Substance: MESALAMINE
     Route: 065
  22. MEZAVANT [Concomitant]
     Active Substance: MESALAMINE
     Dosage: 2.4 G, 1 EVERY 1 DAYS
     Route: 065
  23. SIROLIMUS. [Concomitant]
     Active Substance: SIROLIMUS
     Dosage: 3 MG, 1 EVERY 1 DAYS
     Route: 065
  24. VITAMIN B COMPLEX [Concomitant]
     Active Substance: CYANOCOBALAMIN\DEXPANTHENOL\NIACINAMIDE\PYRIDOXINE HYDROCHLORIDE\RIBOFLAVIN 5^-PHOSPHATE SODIUM\THIAMINE HYDROCHLORIDE\VITAMIN B COMPLEX
     Dosage: 1 DF, 1 EVERY 1 DAYS
     Route: 065
  25. ENTOCORT [Concomitant]
     Active Substance: BUDESONIDE
     Dosage: 9 MG, 1 EVERY 1 DAYS
     Route: 065

REACTIONS (8)
  - Gastrointestinal ulcer [Unknown]
  - Frequent bowel movements [Unknown]
  - Gastrointestinal inflammation [Unknown]
  - Crohn^s disease [Unknown]
  - Diarrhoea [Unknown]
  - Pouchitis [Unknown]
  - Proctitis [Unknown]
  - Aphthous ulcer [Unknown]
